FAERS Safety Report 5814713-8 (Version None)
Quarter: 2008Q3

REPORT INFORMATION
  Report Type: 
  Country: None (occurrence: None)
  Receive Date: 20080718
  Receipt Date: 20080513
  Transmission Date: 20090109
  Serious: No
  Sender: FDA-Public Use
  Company Number: US-KINGPHARMUSA00001-K200800543

PATIENT

DRUGS (5)
  1. LEVOXYL [Suspect]
     Dosage: UNK, UNK
     Dates: start: 20040101, end: 20080503
  2. LEVOXYL [Suspect]
     Dosage: ALTERNATES 25 MCG, QD AND 50 MCG, QD
     Dates: start: 20080510, end: 20080101
  3. LEVOXYL [Suspect]
     Dosage: 25 MCG, QD
     Dates: start: 20080514
  4. CYTOMEL [Suspect]
     Dosage: 5 MCG, BID
     Dates: start: 20040101, end: 20080101
  5. CYTOMEL [Suspect]
     Dosage: 5 MCG, BID
     Dates: start: 20040101, end: 20080101

REACTIONS (6)
  - AMENORRHOEA [None]
  - CHEST PAIN [None]
  - DYSPNOEA [None]
  - MENOPAUSE [None]
  - STRESS [None]
  - WEIGHT INCREASED [None]
